FAERS Safety Report 4885952-8 (Version None)
Quarter: 2006Q1

REPORT INFORMATION
  Report Type: 
  Country: None (occurrence: None)
  Receive Date: 20060117
  Receipt Date: 20060109
  Transmission Date: 20060701
  Serious: Yes (Life-Threatening, Hospitalization)
  Sender: FDA-Public Use
  Company Number: DE-YAMANOUCHI-YEHQ20060124

PATIENT
  Age: 77 Year
  Sex: Male

DRUGS (3)
  1. VESICARE [Suspect]
     Indication: MICTURITION URGENCY
     Dosage: 5 MG QD PO
     Route: 048
     Dates: start: 20050501, end: 20051001
  2. UROXATRAL [Suspect]
     Indication: BENIGN PROSTATIC HYPERPLASIA
     Dosage: 10 MG PO
     Route: 048
     Dates: start: 20051018, end: 20051201
  3. UROXATRAL [Suspect]
     Indication: RESIDUAL URINE VOLUME
     Dosage: 10 MG PO
     Route: 048
     Dates: start: 20051018, end: 20051201

REACTIONS (3)
  - AGITATION [None]
  - ANXIETY [None]
  - SUICIDAL IDEATION [None]
